FAERS Safety Report 20545906 (Version 1)
Quarter: 2022Q1

REPORT INFORMATION
  Report Type: Report from Study
  Country: CO (occurrence: CO)
  Receive Date: 20220303
  Receipt Date: 20220303
  Transmission Date: 20220423
  Serious: Yes (Life-Threatening)
  Sender: FDA-Public Use
  Company Number: CO-NOVARTISPH-NVSC2022CO050385

PATIENT
  Sex: Male

DRUGS (2)
  1. JADENU [Suspect]
     Active Substance: DEFERASIROX
     Indication: Aplastic anaemia
     Dosage: UNK UNK, QD
     Route: 048
  2. JADENU [Suspect]
     Active Substance: DEFERASIROX
     Indication: Iron overload

REACTIONS (1)
  - Platelet count abnormal [Unknown]
